FAERS Safety Report 21015735 (Version 5)
Quarter: 2022Q4

REPORT INFORMATION
  Report Type: Report from Study
  Country: GB (occurrence: GB)
  Receive Date: 20220628
  Receipt Date: 20221109
  Transmission Date: 20230112
  Serious: Yes (Death, Hospitalization, Other)
  Sender: FDA-Public Use
  Company Number: GB-NOVARTISPH-NVSC2022GB143434

PATIENT
  Age: 55 Year
  Sex: Female

DRUGS (1)
  1. COSENTYX [Suspect]
     Active Substance: SECUKINUMAB
     Indication: Psoriatic arthropathy
     Dosage: 300 MG, QMO
     Route: 058
     Dates: start: 20220316

REACTIONS (7)
  - Cerebrovascular accident [Fatal]
  - Cardiac arrest [Fatal]
  - Fall [Not Recovered/Not Resolved]
  - Cerebral thrombosis [Recovering/Resolving]
  - Femur fracture [Not Recovered/Not Resolved]
  - Discharge [Recovered/Resolved]
  - Mobility decreased [Unknown]

NARRATIVE: CASE EVENT DATE: 20220617
